FAERS Safety Report 14233158 (Version 1)
Quarter: 2017Q4

REPORT INFORMATION
  Report Type: Spontaneous
  Country: US (occurrence: None)
  Receive Date: 20171128
  Receipt Date: 20171128
  Transmission Date: 20180321
  Serious: Yes (Hospitalization)
  Sender: FDA-Public Use
  Company Number: None

PATIENT
  Age: 70 Year
  Sex: Male
  Weight: 94.6 kg

DRUGS (20)
  1. CHOLECALCIFEROL [Concomitant]
     Active Substance: CHOLECALCIFEROL
  2. LIDOCAINE-PRILOCAINE (EMLA) CREAM [Concomitant]
  3. NIZORAL [Concomitant]
     Active Substance: KETOCONAZOLE
  4. STIVARGA [Suspect]
     Active Substance: REGORAFENIB
     Indication: RECTAL CANCER
     Route: 048
     Dates: start: 20170809, end: 20170819
  5. STIVARGA [Suspect]
     Active Substance: REGORAFENIB
     Indication: RECTAL CANCER
     Route: 048
     Dates: start: 20170907, end: 20170925
  6. LEVOTHYROXINE (SYNTHROID, LEVOTHROID) [Concomitant]
  7. CALCIUM CARBONATE (TUMS) [Concomitant]
  8. LORATADINE (CLARITIN) [Concomitant]
  9. ZOLOFT [Concomitant]
     Active Substance: SERTRALINE HYDROCHLORIDE
  10. ATIVAN [Concomitant]
     Active Substance: LORAZEPAM
  11. GLUOSAMINE-CHONDROITIN [Concomitant]
  12. IBUPROFEN. [Concomitant]
     Active Substance: IBUPROFEN
  13. MULTIPLE VITAMIN (MULTIVITAMIN) [Concomitant]
  14. DILTIAZEM (CARDIZEM LA, MATZIM LA) [Concomitant]
  15. FLUTICASONE. [Concomitant]
     Active Substance: FLUTICASONE
  16. CARTIA XT [Concomitant]
     Active Substance: DILTIAZEM HYDROCHLORIDE
  17. PROCHLORPERAZINE (COMPAZINE) [Concomitant]
  18. CALCIPOTRIENE. [Concomitant]
     Active Substance: CALCIPOTRIENE
  19. ACYCLOVIR (ZOVIRAX) [Concomitant]
  20. POTASSIUM CHLORIDE SA (KLOR0CON M20) [Concomitant]

REACTIONS (2)
  - Haemorrhage [None]
  - Anaemia [None]

NARRATIVE: CASE EVENT DATE: 20171003
